FAERS Safety Report 4437330-3 (Version None)
Quarter: 2004Q3

REPORT INFORMATION
  Report Type: 
  Country: None (occurrence: None)
  Receive Date: 20040726
  Receipt Date: 20040407
  Transmission Date: 20050211
  Serious: No
  Sender: FDA-Public Use
  Company Number: USA040363607

PATIENT
  Age: 81 Year
  Sex: Female
  Weight: 62 kg

DRUGS (4)
  1. FORTEO [Suspect]
     Indication: OSTEOPOROSIS
     Dosage: 20 UG/L DAY
     Dates: start: 20040228
  2. CALCIUM [Concomitant]
  3. VITAMIN E [Concomitant]
  4. VITAMIN C [Concomitant]

REACTIONS (2)
  - FATIGUE [None]
  - FEELING ABNORMAL [None]
